FAERS Safety Report 6219871-1 (Version None)
Quarter: 2009Q2

REPORT INFORMATION
  Report Type: 
  Country: None (occurrence: None)
  Receive Date: 20090609
  Receipt Date: 20090407
  Transmission Date: 20091009
  Serious: No
  Sender: FDA-Public Use
  Company Number: US-BAYER-200917744NA

PATIENT
  Age: 63 Year
  Sex: Female

DRUGS (9)
  1. ULTRAVIST 300 [Suspect]
     Indication: COMPUTERISED TOMOGRAM ABDOMEN
     Dosage: TOTAL DAILY DOSE: 144 ML  UNIT DOSE: 150 ML
     Route: 042
     Dates: start: 20090407, end: 20090407
  2. HYDROCHLOROTHIAZIDE [Concomitant]
  3. THYROID TAB [Concomitant]
  4. METFORMIN [Concomitant]
  5. ASPIRIN [Concomitant]
  6. ZANTAC [Concomitant]
  7. TRAMADOL HCL [Concomitant]
  8. ZOCOR [Concomitant]
  9. READI-CAT [Concomitant]
     Route: 048

REACTIONS (1)
  - PRURITUS [None]
